FAERS Safety Report 7919818-3 (Version None)
Quarter: 2011Q4

REPORT INFORMATION
  Report Type: 
  Country: None (occurrence: None)
  Receive Date: 20111117
  Receipt Date: 20111117
  Transmission Date: 20120403
  Serious: Yes (Life-Threatening)
  Sender: FDA-Public Use
  Company Number: None

PATIENT
  Age: 73 Year
  Sex: Female
  Weight: 63 kg

DRUGS (1)
  1. ENOXAPARIN [Suspect]
     Indication: ACUTE CORONARY SYNDROME
     Dosage: 70MG
     Route: 058
     Dates: start: 20111029, end: 20111102

REACTIONS (7)
  - HYPERREFLEXIA [None]
  - LETHARGY [None]
  - BRADYCARDIA [None]
  - CEREBROVASCULAR ACCIDENT [None]
  - ASTHENIA [None]
  - ATRIAL FIBRILLATION [None]
  - EXTENSOR PLANTAR RESPONSE [None]
